FAERS Safety Report 11871577 (Version 1)
Quarter: 2015Q4

REPORT INFORMATION
  Report Type: Spontaneous
  Country: SE (occurrence: SE)
  Receive Date: 20151228
  Receipt Date: 20151228
  Transmission Date: 20160305
  Serious: Yes (Hospitalization)
  Sender: FDA-Public Use
  Company Number: SE-PFIZER INC-2015460664

PATIENT
  Age: 89 Year
  Sex: Male

DRUGS (2)
  1. DOLCONTIN [Suspect]
     Active Substance: MORPHINE
     Dates: start: 201511, end: 201511
  2. ATARAX [Suspect]
     Active Substance: HYDROXYZINE\HYDROXYZINE HYDROCHLORIDE
     Indication: PRURITUS
     Dosage: UNK
     Dates: start: 201511, end: 201511

REACTIONS (2)
  - Confusional state [Unknown]
  - Pruritus [Unknown]

NARRATIVE: CASE EVENT DATE: 201511
